FAERS Safety Report 4939871-9 (Version None)
Quarter: 2006Q1

REPORT INFORMATION
  Report Type: 
  Country: None (occurrence: None)
  Receive Date: 20060310
  Receipt Date: 20060301
  Transmission Date: 20060701
  Serious: Yes (Hospitalization)
  Sender: FDA-Public Use
  Company Number: JP-JNJFOC-20051202211

PATIENT
  Sex: Female

DRUGS (10)
  1. RISPERDAL [Suspect]
     Route: 048
  2. RISPERDAL [Suspect]
     Route: 048
  3. RISPERDAL [Suspect]
     Route: 048
  4. RISPERDAL [Suspect]
     Route: 048
  5. RISPERDAL [Suspect]
     Indication: PORIOMANIA
     Route: 048
  6. BROTIZOLAM [Concomitant]
     Indication: SLEEP DISORDER THERAPY
     Route: 048
  7. FLUNITRAZEPAM [Concomitant]
     Indication: SLEEP DISORDER THERAPY
     Route: 048
  8. MIANSERIN HYDROCHLORIDE [Concomitant]
     Indication: SLEEP DISORDER THERAPY
     Route: 048
  9. MIANSERIN HYDROCHLORIDE [Concomitant]
     Indication: DEPRESSION
     Route: 048
  10. BIPERIDEN HYDROCHLORIDE TAB [Concomitant]
     Route: 048

REACTIONS (1)
  - RHABDOMYOLYSIS [None]
